FAERS Safety Report 8621305 (Version 3)
Quarter: 2014Q1

REPORT INFORMATION
  Report Type: Spontaneous
  Country: FR (occurrence: FR)
  Receive Date: 20120619
  Receipt Date: 20140101
  Transmission Date: 20141002
  Serious: Yes (Hospitalization, Other)
  Sender: FDA-Public Use
  Company Number: PHHY2012FR051589

PATIENT
  Age: 75 Year
  Sex: Male

DRUGS (31)
  1. ZOMETA [Suspect]
     Dosage: 4 MG ONCE,SINGLE
     Route: 042
     Dates: start: 20111128
  2. VANCOMYCIN [Suspect]
     Dosage: 250 MG, TID
     Route: 042
     Dates: start: 20111113, end: 20111126
  3. VANCOMYCIN [Suspect]
     Dosage: 125 MG, UNK
     Dates: end: 201210
  4. CLAMOXYL [Suspect]
     Indication: PRODUCTIVE COUGH
     Dosage: 1 G, BID
     Route: 048
     Dates: start: 20111128, end: 20111207
  5. CLAMOXYL [Suspect]
     Dosage: 500 MG, UNK
     Dates: end: 201210
  6. TAZOCILLINE [Suspect]
     Dosage: 4 G, TID
     Route: 042
     Dates: start: 20111113, end: 20111126
  7. TAZOCILLINE [Suspect]
     Dosage: UNK UKN, UNK
     Dates: end: 201301
  8. ISOPTIN [Concomitant]
     Dosage: 240 MG, PER DAY
  9. CRESTOR [Concomitant]
     Dosage: 10 MG, PER DAY
  10. PRAXILENE [Concomitant]
     Dosage: 600 MG, PER DAY
  11. SOLUPRED [Concomitant]
     Indication: COLITIS ULCERATIVE
     Dosage: 15 MG, PER DAY
  12. PURINETHOL [Concomitant]
     Indication: COLITIS ULCERATIVE
     Dosage: 100 MG, PER DAY
  13. KARDEGIC [Concomitant]
     Dosage: 160 MG, PER DAY
  14. CARDENSIEL [Concomitant]
     Dosage: 2.5 MG, PER DAY
  15. TRIATEC [Concomitant]
     Dosage: 10 MG, PER DAY
  16. INSPRA [Concomitant]
     Dosage: 25 MG, PER DAY
  17. LASILIX [Concomitant]
     Dosage: 80 MG, PER DAY
  18. CALCIUM [Concomitant]
     Dosage: 2 DF, PER DAY
  19. VITAMIN D3 [Concomitant]
     Dosage: 2 DF, PER DAY
  20. TARDYFERON [Concomitant]
     Dosage: 80 MG, PER DAY
  21. ROWASA [Concomitant]
     Dosage: 1500 MG, PER DAY
     Dates: start: 20111027, end: 20111219
  22. EUPANTOL [Concomitant]
     Dosage: 80 MG, PER DAY
     Dates: start: 20111114, end: 20111220
  23. MOPRAL [Concomitant]
     Dosage: UNK UKN, UNK
  24. AUGMENTIN [Concomitant]
  25. ROCEPHINE [Concomitant]
     Dosage: UNK UKN, UNK
  26. ROCEPHINE [Concomitant]
     Dosage: 01 G, UNK
     Route: 041
     Dates: start: 201209
  27. TAVANIC [Concomitant]
  28. FLAGYL [Concomitant]
     Dosage: UNK UKN, UNK
  29. FLAGYL [Concomitant]
     Dosage: 250 MG, QD
     Route: 048
     Dates: start: 201301
  30. NORMAL HUMAN IMMUNOGLOBULIN [Concomitant]
     Dosage: 30 G, UNK
     Route: 042
     Dates: start: 20111129
  31. DIURETICS [Concomitant]
     Dosage: UNK

REACTIONS (18)
  - Drug reaction with eosinophilia and systemic symptoms [Recovered/Resolved]
  - Polyarthritis [Unknown]
  - Inflammation [Recovered/Resolved]
  - Pyrexia [Recovered/Resolved]
  - Diarrhoea [Unknown]
  - Rash papular [Recovered/Resolved]
  - Renal failure [Not Recovered/Not Resolved]
  - Blood creatinine increased [Not Recovered/Not Resolved]
  - Proteinuria [Not Recovered/Not Resolved]
  - Skin test negative [Unknown]
  - Tubulointerstitial nephritis [Recovered/Resolved with Sequelae]
  - Hepatic function abnormal [Unknown]
  - Cholestasis [Unknown]
  - Lipase increased [Unknown]
  - Amylase increased [Unknown]
  - Hypoalbuminaemia [Unknown]
  - Bence Jones proteinuria [Unknown]
  - Lymphopenia [Unknown]
